FAERS Safety Report 22100834 (Version 1)
Quarter: 2023Q1

REPORT INFORMATION
  Report Type: Spontaneous
  Country: None (occurrence: PL)
  Receive Date: 20230316
  Receipt Date: 20230316
  Transmission Date: 20230418
  Serious: Yes (Other)
  Sender: FDA-Public Use
  Company Number: PL-Jiangsu Hengrui Medicine Co., Ltd.-2139140

PATIENT
  Age: 7 Year
  Sex: Female

DRUGS (8)
  1. CYCLOPHOSPHAMIDE [Suspect]
     Active Substance: CYCLOPHOSPHAMIDE
     Indication: B-cell lymphoma
  2. METHOTREXATE [Suspect]
     Active Substance: METHOTREXATE
  3. VINCRISTINE [Suspect]
     Active Substance: VINCRISTINE
     Route: 041
  4. PREDNISONE [Suspect]
     Active Substance: PREDNISONE
     Route: 048
  5. RITUXIMAB [Suspect]
     Active Substance: RITUXIMAB
  6. LEUCOVORIN [Suspect]
     Active Substance: LEUCOVORIN
  7. HYDROCORTISONE [Suspect]
     Active Substance: HYDROCORTISONE
  8. CYTARABINE [Suspect]
     Active Substance: CYTARABINE

REACTIONS (7)
  - Leukopenia [Unknown]
  - Febrile neutropenia [Unknown]
  - Urinary tract infection [Unknown]
  - Stomatitis [Unknown]
  - Thrombocytopenia [Unknown]
  - Anaemia [Unknown]
  - Hypertension [Unknown]
